FAERS Safety Report 18011517 (Version 6)
Quarter: 2020Q3

REPORT INFORMATION
  Report Type: Report from Study
  Country: JP (occurrence: JP)
  Receive Date: 20200713
  Receipt Date: 20200901
  Transmission Date: 20201103
  Serious: Yes (Hospitalization, Other)
  Sender: FDA-Public Use
  Company Number: JP-BRISTOL-MYERS SQUIBB COMPANY-BMS-2020-045630

PATIENT
  Age: 73 Year
  Sex: Male
  Weight: 69.5 kg

DRUGS (7)
  1. IPILIMUMAB [Suspect]
     Active Substance: IPILIMUMAB
     Dosage: 1 MILLIGRAM/KILOGRAM, ONE TIME DOSE
     Route: 041
     Dates: start: 20200608
  2. NIVOLUMAB [Suspect]
     Active Substance: NIVOLUMAB
     Dosage: 240 MILLIGRAM
     Route: 041
     Dates: start: 20200608
  3. IPILIMUMAB [Suspect]
     Active Substance: IPILIMUMAB
     Indication: METASTATIC RENAL CELL CARCINOMA
     Dosage: 1 MILLIGRAM/KILOGRAM, ONE TIME DOSE
     Route: 041
     Dates: start: 20200518, end: 20200518
  4. NIVOLUMAB [Suspect]
     Active Substance: NIVOLUMAB
     Indication: METASTATIC RENAL CELL CARCINOMA
     Dosage: 240 MILLIGRAM, ONE TIME DOSE
     Route: 041
     Dates: start: 20200518, end: 20200518
  5. SOLU?MEDROL [Suspect]
     Active Substance: METHYLPREDNISOLONE SODIUM SUCCINATE
     Indication: INTERSTITIAL LUNG DISEASE
     Dosage: 40 MILLIGRAM, QD
     Route: 041
     Dates: start: 20200627, end: 20200705
  6. SOLU?MEDROL [Suspect]
     Active Substance: METHYLPREDNISOLONE SODIUM SUCCINATE
     Indication: DRUG ERUPTION
     Dosage: 70 MILLIGRAM, QD
     Route: 041
     Dates: start: 20200619, end: 20200626
  7. CEFTRIAXONE NA [Suspect]
     Active Substance: CEFTRIAXONE
     Indication: INTERSTITIAL LUNG DISEASE
     Dosage: 2 GRAM, QD
     Route: 041
     Dates: start: 20200618, end: 20200626

REACTIONS (10)
  - Decreased appetite [Unknown]
  - Blood creatinine increased [Unknown]
  - Oral candidiasis [Not Recovered/Not Resolved]
  - Dehydration [Not Recovered/Not Resolved]
  - Pyrexia [Unknown]
  - Drug-induced liver injury [Not Recovered/Not Resolved]
  - Adrenocortical insufficiency acute [Unknown]
  - Drug eruption [Recovering/Resolving]
  - Generalised oedema [Not Recovered/Not Resolved]
  - Interstitial lung disease [Recovered/Resolved]

NARRATIVE: CASE EVENT DATE: 2020
